FAERS Safety Report 9422964 (Version 1)
Quarter: 2013Q3

REPORT INFORMATION
  Report Type: Report from Study
  Country: US (occurrence: US)
  Receive Date: 20130726
  Receipt Date: 20130726
  Transmission Date: 20140515
  Serious: Yes (Other)
  Sender: FDA-Public Use
  Company Number: US-ROCHE-1248872

PATIENT
  Sex: 0

DRUGS (5)
  1. PEG-INTERFERON ALFA 2A [Suspect]
     Indication: HEPATITIS C
     Route: 058
  2. RIBAVIRIN [Suspect]
     Indication: HEPATITIS C
     Dosage: AT 800 MG/DAY FOR THE PATIENTS WITH A GLOMERULAR FILTRATION RATE (GFR) MORE THAN OR EQUAL TO 60 ML/M
     Route: 048
  3. BOCEPREVIR [Suspect]
     Indication: HEPATITIS C
     Route: 048
  4. CYCLOSPORINE [Suspect]
     Indication: PROPHYLAXIS AGAINST TRANSPLANT REJECTION
     Route: 065
  5. TACROLIMUS [Suspect]
     Indication: PROPHYLAXIS AGAINST TRANSPLANT REJECTION
     Dosage: SIGNIFICANT DOSE REDUCTIONS FROM 1 MG ORALLY TWICE DAILY TO 0.5 MG EVERY OTHER DAY AND FROM 0.5 MG O
     Route: 048

REACTIONS (4)
  - Neutrophil count decreased [Unknown]
  - Anaemia [Unknown]
  - Ascites [Unknown]
  - Fluid overload [Unknown]
